FAERS Safety Report 14911895 (Version 3)
Quarter: 2021Q3

REPORT INFORMATION
  Report Type: Spontaneous
  Country: CZ (occurrence: CZ)
  Receive Date: 20180518
  Receipt Date: 20210816
  Transmission Date: 20211014
  Serious: Yes (Hospitalization)
  Sender: FDA-Public Use
  Company Number: CZ-TEVA-2018-CZ-894746

PATIENT
  Age: 25 Year
  Sex: Male
  Weight: 130 kg

DRUGS (2)
  1. QUETIAPINE. [Suspect]
     Active Substance: QUETIAPINE
     Indication: SCHIZOPHRENIA
     Route: 065
  2. TISERCIN [Concomitant]
     Active Substance: LEVOMEPROMAZINE
     Indication: SCHIZOPHRENIA
     Route: 065

REACTIONS (4)
  - Hyponatraemia [Recovered/Resolved]
  - Hyperlipidaemia [Recovering/Resolving]
  - Pancreatitis acute [Recovered/Resolved]
  - Hyperglycaemia [Recovered/Resolved]
